FAERS Safety Report 21156824 (Version 1)
Quarter: 2022Q3

REPORT INFORMATION
  Report Type: Spontaneous
  Country: CH (occurrence: CH)
  Receive Date: 20220801
  Receipt Date: 20220801
  Transmission Date: 20221027
  Serious: Yes (Other)
  Sender: FDA-Public Use
  Company Number: CH-PFIZER INC-PV202200031534

PATIENT
  Age: 6 Month
  Sex: Male
  Weight: 6 kg

DRUGS (5)
  1. DEXMEDETOMIDINE HYDROCHLORIDE [Suspect]
     Active Substance: DEXMEDETOMIDINE HYDROCHLORIDE
     Indication: Sedative therapy
     Dosage: 18 UG (3 ?G/KG)
     Route: 045
  2. DEXMEDETOMIDINE HYDROCHLORIDE [Suspect]
     Active Substance: DEXMEDETOMIDINE HYDROCHLORIDE
     Dosage: 24 UG (4 ?G/KG) REPEATED AFTER 30-40 MIN
  3. PHENYLEPHRINE [Suspect]
     Active Substance: PHENYLEPHRINE HYDROCHLORIDE
     Indication: Pupil dilation procedure
     Dosage: 2.5 % (BOTH EYES)
     Route: 047
  4. PROPOFOL [Suspect]
     Active Substance: PROPOFOL
     Indication: Sedative therapy
     Dosage: 4 MG (=0.7 MG/KG) FOUR TIMES IN TOTAL
     Route: 042
  5. TROPICAMIDE [Concomitant]
     Active Substance: TROPICAMIDE
     Indication: Pupil dilation procedure
     Dosage: 0.5 % (BOTH EYES)
     Route: 047

REACTIONS (3)
  - Trigemino-cardiac reflex [Recovered/Resolved]
  - Off label use [Unknown]
  - Off label use [Unknown]
